FAERS Safety Report 4867942-4 (Version None)
Quarter: 2005Q4

REPORT INFORMATION
  Report Type: 
  Country: None (occurrence: None)
  Receive Date: 20051227
  Receipt Date: 20051220
  Transmission Date: 20060501
  Serious: Yes (Death, Hospitalization, Other)
  Sender: FDA-Public Use
  Company Number: 2005-12-1048

PATIENT
  Age: 48 Year
  Sex: Male

DRUGS (1)
  1. INTERFERON ALFA-2B INJECTABLE [Suspect]
     Indication: MALIGNANT MELANOMA
     Dosage: 10 MU/M^2 TIW SUBCUTANEO
     Route: 058

REACTIONS (18)
  - ASTHENIA [None]
  - BLOOD PRESSURE SYSTOLIC DECREASED [None]
  - BRADYPNOEA [None]
  - COMA [None]
  - CONVULSION [None]
  - DIFFICULT TO WEAN FROM VENTILATOR [None]
  - INJECTION SITE ERYTHEMA [None]
  - INJECTION SITE RASH [None]
  - METASTASES TO BONE [None]
  - METASTASES TO CENTRAL NERVOUS SYSTEM [None]
  - NON-CARDIOGENIC PULMONARY OEDEMA [None]
  - NUCLEAR MAGNETIC RESONANCE IMAGING BRAIN ABNORMAL [None]
  - PARAESTHESIA [None]
  - PROCEDURAL COMPLICATION [None]
  - PULMONARY OEDEMA [None]
  - QUADRIPARESIS [None]
  - RASH GENERALISED [None]
  - SHOCK [None]
